FAERS Safety Report 4615096-1 (Version None)
Quarter: 2005Q1

REPORT INFORMATION
  Report Type: 
  Country: None (occurrence: None)
  Receive Date: 20050315
  Receipt Date: 20050228
  Transmission Date: 20050727
  Serious: Yes (Hospitalization)
  Sender: FDA-Public Use
  Company Number: 8009246

PATIENT
  Age: 44 Year
  Sex: Female
  Weight: 60 kg

DRUGS (5)
  1. KEPPRA [Suspect]
     Indication: EPILEPSY
     Dosage: 500 MG /D PO
     Route: 048
     Dates: start: 20040726, end: 20040726
  2. KEPPRA [Suspect]
     Indication: PETIT MAL EPILEPSY
     Dosage: 500 MG /D PO
     Route: 048
     Dates: start: 20040726, end: 20040726
  3. KEPPRA [Suspect]
     Indication: EPILEPSY
     Dosage: 2000 MG /D PO
     Route: 048
     Dates: start: 20040726
  4. KEPPRA [Suspect]
     Indication: PETIT MAL EPILEPSY
     Dosage: 2000 MG /D PO
     Route: 048
     Dates: start: 20040726
  5. ERGENYL [Concomitant]

REACTIONS (2)
  - ARTERIAL DISORDER [None]
  - VESTIBULAR DISORDER [None]
